FAERS Safety Report 8013455-0 (Version None)
Quarter: 2011Q4

REPORT INFORMATION
  Report Type: 
  Country: None (occurrence: None)
  Receive Date: 20111229
  Receipt Date: 20111229
  Transmission Date: 20120403
  Serious: Yes (Other)
  Sender: FDA-Public Use
  Company Number: BR-PFIZER INC-2011313269

PATIENT
  Age: 62 Year
  Sex: Female
  Weight: 59 kg

DRUGS (5)
  1. VARENICLINE TARTRATE [Suspect]
     Dosage: 1 TABLET EVERY 12 HOURS
     Route: 048
     Dates: start: 20110101
  2. CAPTOPRIL [Concomitant]
     Indication: HYPERTENSION
     Dosage: STRENGTH 50MG, 1X/DAY
     Dates: start: 20110601
  3. METFORMIN [Concomitant]
     Indication: DIABETES MELLITUS
     Dosage: STRENGTH 850MG, 2X/DAY
     Dates: start: 20080101
  4. FERROUS SULFATE TAB [Concomitant]
     Indication: ANAEMIA
     Dosage: STRENGTH 40MG, 2X/DAY
     Dates: start: 20111201
  5. VARENICLINE TARTRATE [Suspect]
     Indication: SMOKING CESSATION THERAPY
     Dosage: UNK
     Route: 048
     Dates: start: 20111101, end: 20110101

REACTIONS (7)
  - DECREASED APPETITE [None]
  - NAUSEA [None]
  - ANXIETY [None]
  - DRY THROAT [None]
  - DISORIENTATION [None]
  - NERVOUSNESS [None]
  - ABDOMINAL DISCOMFORT [None]
